FAERS Safety Report 13500194 (Version 1)
Quarter: 2017Q2

REPORT INFORMATION
  Report Type: Spontaneous
  Country: US (occurrence: US)
  Receive Date: 20170501
  Receipt Date: 20170501
  Transmission Date: 20170830
  Serious: Yes (Life-Threatening)
  Sender: FDA-Public Use
  Company Number: None

PATIENT
  Age: 83 Year
  Sex: Female
  Weight: 55.8 kg

DRUGS (9)
  1. THYROID [Concomitant]
     Active Substance: LEVOTHYROXINE\LIOTHYRONINE
  2. BAYER ASPIRIN [Concomitant]
     Active Substance: ASPIRIN
  3. TEARS FOR DRY EYE [Concomitant]
  4. XARELTO [Suspect]
     Active Substance: RIVAROXABAN
     Indication: HIP SURGERY
     Dosage: ?          QUANTITY:1 TABLET(S);?
     Route: 048
     Dates: start: 20170412, end: 20170416
  5. EYE DROPS [Concomitant]
     Active Substance: UNSPECIFIED INGREDIENT
  6. ELIQUIS [Concomitant]
     Active Substance: APIXABAN
  7. PERCOCET [Concomitant]
     Active Substance: ACETAMINOPHEN\OXYCODONE HYDROCHLORIDE
  8. HERBAL TEAS [Concomitant]
     Active Substance: HERBALS
  9. GLUCOSAMINE [Concomitant]
     Active Substance: GLUCOSAMINE

REACTIONS (4)
  - Dyspnoea [None]
  - Dizziness [None]
  - Pruritus [None]
  - Asthenia [None]

NARRATIVE: CASE EVENT DATE: 20170416
